FAERS Safety Report 8401947-1 (Version None)
Quarter: 2012Q2

REPORT INFORMATION
  Report Type: 
  Country: None (occurrence: None)
  Receive Date: 20120529
  Receipt Date: 20120517
  Transmission Date: 20120825
  Serious: Yes (Life-Threatening)
  Sender: FDA-Public Use
  Company Number: 2012SP022491

PATIENT
  Age: 60 Year
  Sex: Male

DRUGS (5)
  1. PEGINTERFERON ALFA-2B [Suspect]
     Indication: HEPATITIS C
     Dosage: 100 MCG;QW;SC
     Route: 058
  2. VITAMIN B COMPLEX /00003501/ [Concomitant]
  3. BOCEPREVIR (SCH-503034) (800 MG) [Suspect]
     Indication: HEPATITIS C
     Dosage: 800 MG;Q12H;PO
     Route: 048
     Dates: start: 20111001, end: 20120424
  4. FOLIC ACID [Concomitant]
  5. RIBAVIRIN [Suspect]
     Indication: HEPATITIS C
     Dosage: 1000 MG;QD;PO
     Route: 048

REACTIONS (1)
  - HEPATIC NEOPLASM MALIGNANT [None]
